FAERS Safety Report 7793298-3 (Version None)
Quarter: 2011Q4

REPORT INFORMATION
  Report Type: 
  Country: None (occurrence: None)
  Receive Date: 20111003
  Receipt Date: 20110929
  Transmission Date: 20120403
  Serious: No
  Sender: FDA-Public Use
  Company Number: US-BAYER-2011-092925

PATIENT
  Age: 42 Year
  Sex: Male

DRUGS (3)
  1. ULTRAVIST 150 [Suspect]
     Indication: COMPUTERISED TOMOGRAM ABDOMEN
     Dosage: 99 ML, ONCE
     Route: 042
     Dates: start: 20110928, end: 20110928
  2. ULTRAVIST 150 [Suspect]
     Indication: LIVER FUNCTION TEST ABNORMAL
  3. PAXIL [Concomitant]

REACTIONS (1)
  - HYPERHIDROSIS [None]
